FAERS Safety Report 20690391 (Version 17)
Quarter: 2023Q1

REPORT INFORMATION
  Report Type: Spontaneous
  Country: GB (occurrence: GB)
  Receive Date: 20220408
  Receipt Date: 20230119
  Transmission Date: 20230417
  Serious: Yes (Death, Life-Threatening, Hospitalization, Disabling, Other)
  Sender: FDA-Public Use
  Company Number: GB-TEVA-2022-GB-2025957

PATIENT
  Age: 76 Year
  Sex: Male
  Weight: 69 kg

DRUGS (76)
  1. OMEPRAZOLE [Suspect]
     Active Substance: OMEPRAZOLE
     Indication: Product used for unknown indication
     Dosage: PHARMACEUTICAL DOSE FORM: FORMULATION UNKNOWN?MORNING
     Route: 065
  2. OMEPRAZOLE [Suspect]
     Active Substance: OMEPRAZOLE
     Indication: Duodenal ulcer
     Dosage: 20 MILLIGRAM DAILY; OMEPRAZOLE CHEMO IBERICA 20 MG DAILY?PHARMACEUTICAL DOSE FORM: FORMULATION UNKNO
     Route: 048
  3. OMEPRAZOLE [Suspect]
     Active Substance: OMEPRAZOLE
     Dosage: .6667 MILLIGRAM DAILY;
     Route: 048
  4. ALFACALCIDOL [Suspect]
     Active Substance: ALFACALCIDOL
     Indication: Product used for unknown indication
     Dosage: 500 NANOGRAM DAILY; PHARMACEUTICAL DOSE FORM: FORMULATION UNKNOWN
     Route: 048
  5. DOXYCYCLINE [Suspect]
     Active Substance: DOXYCYCLINE
     Indication: Product used for unknown indication
     Dosage: PHARMACEUTICAL DOSE FORM: FORMULATION UNKNOWN; DOSAGE: 1 DF
     Route: 065
  6. HYDROCORTISONE [Suspect]
     Active Substance: HYDROCORTISONE
     Indication: Product used for unknown indication
     Dosage: 450 MILLIGRAM DAILY;
     Route: 042
     Dates: start: 20180201
  7. HYDROCORTISONE [Suspect]
     Active Substance: HYDROCORTISONE
     Dosage: 150 MILLIGRAM DAILY;
     Route: 065
  8. HYDROCORTISONE [Suspect]
     Active Substance: HYDROCORTISONE
     Dosage: 150 MILLIGRAM DAILY;
     Route: 065
     Dates: start: 20180201
  9. HYDROCORTISONE [Suspect]
     Active Substance: HYDROCORTISONE
     Dosage: 0.33 UNITS IN 1 DAY
     Route: 042
  10. HYDROCORTISONE [Suspect]
     Active Substance: HYDROCORTISONE
     Dosage: 0.33 UNITS IN 1 DAY
     Route: 042
     Dates: start: 20180201
  11. BISOPROLOL [Suspect]
     Active Substance: BISOPROLOL
     Indication: Product used for unknown indication
     Dosage: PHARMACEUTICAL DOSE FORM: FORMULATION UNKNOWN
     Route: 065
  12. DEXTROSE [Suspect]
     Active Substance: DEXTROSE
     Indication: Product used for unknown indication
     Dosage: PHARMACEUTICAL DOSE FORM: FORMULATION UNKNOWN
     Route: 065
  13. CEFUROXIME [Suspect]
     Active Substance: CEFUROXIME
     Indication: Product used for unknown indication
     Dosage: PHARMACEUTICAL DOSE FORM: FORMULATION UNKNOWN
     Route: 065
     Dates: start: 20180131
  14. SENNOSIDES A AND B [Suspect]
     Active Substance: SENNOSIDES A AND B
     Indication: Product used for unknown indication
     Dosage: PHARMACEUTICAL DOSE FORM: FORMULATION UNKNOWN
     Route: 065
  15. NITROGLYCERIN [Suspect]
     Active Substance: NITROGLYCERIN
     Indication: Product used for unknown indication
     Dosage: PHARMACEUTICAL DOSE FORM: SPRAY
     Route: 065
  16. CLARITHROMYCIN [Suspect]
     Active Substance: CLARITHROMYCIN
     Indication: Pneumonia
     Dosage: 250 MILLIGRAM DAILY; 500 MILLIGRAM, QOD
     Route: 042
     Dates: start: 20180127, end: 20180131
  17. CLARITHROMYCIN [Suspect]
     Active Substance: CLARITHROMYCIN
     Indication: Lower respiratory tract infection
     Dosage: 9000 MILLIGRAM DAILY;
     Route: 042
  18. CLARITHROMYCIN [Suspect]
     Active Substance: CLARITHROMYCIN
     Indication: Mediastinitis
     Dosage: 1000 MILLIGRAM DAILY;
     Route: 042
     Dates: start: 20180127, end: 20180130
  19. CLARITHROMYCIN [Suspect]
     Active Substance: CLARITHROMYCIN
     Dosage: 1000 MILLIGRAM DAILY;
     Route: 042
  20. CLARITHROMYCIN [Suspect]
     Active Substance: CLARITHROMYCIN
     Dosage: 1000 MILLIGRAM DAILY;
     Route: 042
     Dates: start: 20180127
  21. TACROLIMUS [Interacting]
     Active Substance: TACROLIMUS
     Indication: Renal transplant
     Dosage: 3 MILLIGRAM DAILY;
     Route: 065
     Dates: start: 20180128
  22. TACROLIMUS [Interacting]
     Active Substance: TACROLIMUS
     Indication: Renal transplant
     Dosage: 3 MILLIGRAM DAILY;
     Route: 065
     Dates: start: 20100128, end: 20180130
  23. TACROLIMUS [Interacting]
     Active Substance: TACROLIMUS
     Indication: Prophylaxis against transplant rejection
     Dosage: 30 MILLIGRAM DAILY;
     Route: 065
  24. TACROLIMUS [Interacting]
     Active Substance: TACROLIMUS
     Dosage: 4 MILLIGRAM DAILY;
     Route: 065
     Dates: start: 20180128
  25. TACROLIMUS [Interacting]
     Active Substance: TACROLIMUS
     Dosage: 2 MILLIGRAM DAILY;
     Route: 048
  26. TACROLIMUS [Interacting]
     Active Substance: TACROLIMUS
     Route: 065
  27. TACROLIMUS [Interacting]
     Active Substance: TACROLIMUS
     Route: 065
  28. TACROLIMUS [Interacting]
     Active Substance: TACROLIMUS
     Dosage: 4 MILLIGRAM DAILY;
     Route: 048
     Dates: start: 20180128, end: 20180130
  29. TACROLIMUS [Interacting]
     Active Substance: TACROLIMUS
     Dosage: 3 MILLIGRAM DAILY;
     Route: 048
     Dates: start: 20100127, end: 20180130
  30. TACROLIMUS [Interacting]
     Active Substance: TACROLIMUS
     Dosage: 1.5 MILLIGRAM DAILY;
     Route: 048
     Dates: start: 20180127
  31. TACROLIMUS [Interacting]
     Active Substance: TACROLIMUS
     Dosage: 30 MILLIGRAM DAILY;
     Route: 048
     Dates: start: 20180127
  32. NITROGLYCERIN [Suspect]
     Active Substance: NITROGLYCERIN
     Indication: Product used for unknown indication
     Dosage: PHARMACEUTICAL DOSE FORM: FORMULATION UNKNOWN
     Route: 065
  33. ENVARSUS XR [Suspect]
     Active Substance: TACROLIMUS
     Indication: Prophylaxis against transplant rejection
     Route: 065
  34. ENVARSUS XR [Suspect]
     Active Substance: TACROLIMUS
     Dosage: 3 MILLIGRAM DAILY;
     Route: 065
     Dates: start: 20180127, end: 20180131
  35. OMEPRAZOLE [Suspect]
     Active Substance: OMEPRAZOLE
     Indication: Duodenal ulcer
     Dosage: 20 MILLIGRAM DAILY; PHARMACEUTICAL DOSE FORM: FORMULATION UNKNOWN
     Route: 048
  36. OMEPRAZOLE [Suspect]
     Active Substance: OMEPRAZOLE
     Dosage: PHARMACEUTICAL DOSE FORM: FORMULATION UNKNOWN
     Route: 048
  37. PREDNISOLONE [Concomitant]
     Active Substance: PREDNISOLONE
     Indication: Product used for unknown indication
     Dosage: INCREASE PREDNISOLONE TO 10 MG FOR 5 DAYS
     Route: 048
     Dates: start: 20180127
  38. PREDNISOLONE [Concomitant]
     Active Substance: PREDNISOLONE
     Dosage: INCREASE PREDNISOLONE TO 10 MG FOR 5 DAYS
     Route: 048
     Dates: start: 20180127
  39. PREDNISOLONE [Concomitant]
     Active Substance: PREDNISOLONE
     Dosage: AM
     Route: 048
  40. PREDNISOLONE [Concomitant]
     Active Substance: PREDNISOLONE
     Dosage: .3333 MILLIGRAM DAILY;
     Route: 048
  41. PREDNISOLONE [Concomitant]
     Active Substance: PREDNISOLONE
     Dosage: 5 MILLIGRAM DAILY;
     Route: 048
  42. EPLERENONE [Concomitant]
     Active Substance: EPLERENONE
     Indication: Product used for unknown indication
     Dosage: 25 MILLIGRAM DAILY; EPLERENONE 25MG OM PO O/A??PHARMACEUTICAL DOSE FORM: FORMULATION UNKNOWN
     Route: 048
     Dates: start: 20180130
  43. EPLERENONE [Concomitant]
     Active Substance: EPLERENONE
     Dosage: PHARMACEUTICAL DOSE FORM: FORMULATION UNKNOWN, MORNING
     Route: 048
     Dates: start: 20180130
  44. EPLERENONE [Concomitant]
     Active Substance: EPLERENONE
     Route: 048
     Dates: start: 20180130
  45. EPLERENONE [Concomitant]
     Active Substance: EPLERENONE
     Route: 048
     Dates: start: 20180130
  46. EPLERENONE [Concomitant]
     Active Substance: EPLERENONE
     Dosage: EVERY 1 MONTH
     Route: 048
  47. NITROGLYCERIN [Concomitant]
     Active Substance: NITROGLYCERIN
     Indication: Product used for unknown indication
     Dosage: GTN SPRAY
     Route: 065
  48. GLICLAZIDE [Concomitant]
     Active Substance: GLICLAZIDE
     Indication: Product used for unknown indication
     Dosage: 40 MILLIGRAM DAILY; GLICLAZIDE 40MG OM PO O/A?PHARMACEUTICAL DOSE FORM: FORMULATION UNKNOWN
     Route: 048
  49. GLICLAZIDE [Concomitant]
     Active Substance: GLICLAZIDE
     Dosage: PHARMACEUTICAL DOSE FORM: FORMULATION UNKNOWN
     Route: 048
  50. GLICLAZIDE [Concomitant]
     Active Substance: GLICLAZIDE
     Dosage: 40 MILLIGRAM DAILY;
     Route: 048
  51. FUROSEMIDE [Concomitant]
     Active Substance: FUROSEMIDE
     Indication: Product used for unknown indication
     Dosage: 2.6667 MILLIGRAM DAILY; FUROSEMIDE 80MG OM PO O/A??PHARMACEUTICAL DOSE FORM: FORMULATION UNKNOWN
     Route: 048
     Dates: start: 20180130
  52. FUROSEMIDE [Concomitant]
     Active Substance: FUROSEMIDE
     Dosage: 12 PM?PHARMACEUTICAL DOSE FORM: FORMULATION UNKNOWN
     Route: 065
  53. FUROSEMIDE [Concomitant]
     Active Substance: FUROSEMIDE
     Dosage: 120 MILLIGRAM DAILY; 80 MG MORNING AND 40 MG 12PM?PHARMACEUTICAL DOSE FORM: FORMULATION UNKNOWN
     Route: 048
     Dates: start: 20180130
  54. FUROSEMIDE [Concomitant]
     Active Substance: FUROSEMIDE
     Dosage: 80 MILLIGRAM DAILY; PHARMACEUTICAL DOSE FORM: FORMULATION UNKNOWN
     Route: 048
  55. ALFACALCIDOL [Concomitant]
     Active Substance: ALFACALCIDOL
     Indication: Product used for unknown indication
     Dosage: 500 NANOGRAM DAILY; ALFACALCIDOL 500NG OD PO O/A
     Route: 048
  56. CHOLECALCIFEROL [Concomitant]
     Active Substance: CHOLECALCIFEROL
     Indication: Product used for unknown indication
     Dosage: 20 NANOGRAM DAILY; CALCIUM CARBONATE + COLECALCIFEROL 20NG DAILY?PHARMACEUTICAL DOSE FORM: FORMULATI
     Route: 048
  57. CHOLECALCIFEROL [Concomitant]
     Active Substance: CHOLECALCIFEROL
     Dosage: PHARMACEUTICAL DOSE FORM: FORMULATION UNKNOWN
     Route: 048
  58. CHOLECALCIFEROL [Concomitant]
     Active Substance: CHOLECALCIFEROL
     Dosage: EVERY 1 DAY(S) CALCIUM CARBONATE + COLECALCIFEROL 20NG DAILY
     Route: 048
  59. SENNA [Concomitant]
     Active Substance: SENNA LEAF\SENNOSIDES\SENNOSIDES A AND B
     Indication: Product used for unknown indication
     Dosage: 15 MILLIGRAM DAILY; SENNA 15MG ON PO O/A?PHARMACEUTICAL DOSE FORM: FORMULATION UNKNOWN
     Route: 048
  60. SENNA [Concomitant]
     Active Substance: SENNA LEAF\SENNOSIDES\SENNOSIDES A AND B
     Dosage: 15 MILLIGRAM DAILY; PM VERY 1 DAY(S)
     Route: 048
  61. SENNA [Concomitant]
     Active Substance: SENNA LEAF\SENNOSIDES\SENNOSIDES A AND B
     Dosage: 15 MILLIGRAM DAILY; EVERY 1 DAY(S)
     Route: 048
  62. BETAHISTINE [Concomitant]
     Active Substance: BETAHISTINE
     Indication: Product used for unknown indication
     Dosage: 8 MILLIGRAM DAILY; BETAHISTINE 8MG OM PO?PHARMACEUTICAL DOSE FORM: FORMULATION UNKNOWN?TAKEN MORNING
     Route: 048
  63. BETAHISTINE [Concomitant]
     Active Substance: BETAHISTINE
     Dosage: PHARMACEUTICAL DOSE FORM: FORMULATION UNKNOWN?TAKEN MORNING, ORALLY
     Route: 048
  64. doxycicline [Concomitant]
     Indication: Product used for unknown indication
     Route: 065
  65. doxycicline [Concomitant]
  66. DEXTROSE [Concomitant]
     Active Substance: DEXTROSE
     Indication: Product used for unknown indication
     Dosage: PHARMACEUTICAL DOSE FORM: FORMULATION UNKNOWN
     Route: 065
     Dates: start: 20180130
  67. ALBUTEROL [Concomitant]
     Active Substance: ALBUTEROL
     Indication: Product used for unknown indication
     Dosage: PHARMACEUTICAL DOSE FORM: FORMULATION UNKNOWN
     Route: 065
  68. ALLOPURINOL [Concomitant]
     Active Substance: ALLOPURINOL
     Indication: Product used for unknown indication
     Dosage: 100 MILLIGRAM DAILY; ALLOPURINOL 100MG OD PO O/A?PHARMACEUTICAL DOSE FORM: FORMULATION UNKNOWN
     Route: 048
  69. GLUCAGON [Concomitant]
     Active Substance: GLUCAGON
     Indication: Product used for unknown indication
     Dosage: PHARMACEUTICAL DOSE FORM: FORMULATION UNKNOWN
     Route: 030
     Dates: start: 20180130
  70. HYDROCORTISONE [Concomitant]
     Active Substance: HYDROCORTISONE
     Indication: Product used for unknown indication
     Dosage: 150 MILLIGRAM DAILY; HYDROCORTISONE IV 50 MG THREE TIMES A DAY
     Route: 042
  71. HYDROCORTISONE [Concomitant]
     Active Substance: HYDROCORTISONE
     Route: 065
  72. GLUCOGEL [Concomitant]
     Indication: Product used for unknown indication
     Dosage: PHARMACEUTICAL DOSE FORM: FORMULATION UNKNOWN
     Route: 065
     Dates: start: 20180130
  73. CALCIUM CARBONATE [Concomitant]
     Active Substance: CALCIUM CARBONATE
     Indication: Product used for unknown indication
     Dosage: PHARMACEUTICAL DOSE FORM: FORMULATION UNKNOWN
     Route: 048
  74. TACROLIMUS [Concomitant]
     Active Substance: TACROLIMUS
     Indication: Renal transplant
     Route: 048
  75. TACROLIMUS [Concomitant]
     Active Substance: TACROLIMUS
     Route: 048
  76. TACROLIMUS [Concomitant]
     Active Substance: TACROLIMUS
     Dosage: 8769 MG THROUGH 8 YEARS
     Route: 048
     Dates: start: 20100127

REACTIONS (39)
  - Oesophageal carcinoma [Fatal]
  - Myocardial ischaemia [Fatal]
  - Drug interaction [Fatal]
  - Pneumonia [Fatal]
  - Acute kidney injury [Fatal]
  - Cardiac failure congestive [Fatal]
  - Labelled drug-drug interaction medication error [Fatal]
  - Superinfection [Fatal]
  - Toxicity to various agents [Fatal]
  - Immunosuppressant drug level increased [Fatal]
  - Lung consolidation [Fatal]
  - Soft tissue mass [Fatal]
  - Hypoglycaemia [Fatal]
  - Rales [Fatal]
  - Inflammatory marker increased [Fatal]
  - Productive cough [Fatal]
  - Swelling [Fatal]
  - Dysphagia [Fatal]
  - Sepsis [Fatal]
  - Multimorbidity [Fatal]
  - Rash [Fatal]
  - Malaise [Fatal]
  - Transplant failure [Fatal]
  - Pyrexia [Fatal]
  - Cough [Fatal]
  - Condition aggravated [Fatal]
  - Oesophageal perforation [Fatal]
  - Pleural effusion [Fatal]
  - Haemoptysis [Fatal]
  - Drug level increased [Fatal]
  - Ascites [Fatal]
  - Cardiomegaly [Fatal]
  - Dyspnoea [Fatal]
  - Lower respiratory tract infection [Fatal]
  - Drug interaction [Fatal]
  - Oesophageal carcinoma [Fatal]
  - Oesophageal perforation [Fatal]
  - Pneumonia [Unknown]
  - Renal impairment [Fatal]

NARRATIVE: CASE EVENT DATE: 20180118
